FAERS Safety Report 26073286 (Version 1)
Quarter: 2025Q4

REPORT INFORMATION
  Report Type: Spontaneous
  Country: US (occurrence: US)
  Receive Date: 20251121
  Receipt Date: 20251121
  Transmission Date: 20260117
  Serious: No
  Sender: OTSUKA
  Company Number: US-OTSUKA-2024_032078

PATIENT
  Age: 81 Year
  Sex: Male
  Weight: 97.52 kg

DRUGS (2)
  1. NUEDEXTA [Suspect]
     Active Substance: DEXTROMETHORPHAN HYDROBROMIDE\QUINIDINE SULFATE
     Indication: Affect lability
     Dosage: 1 DF (20-10 MG), QD
     Dates: start: 202411
  2. NUEDEXTA [Suspect]
     Active Substance: DEXTROMETHORPHAN HYDROBROMIDE\QUINIDINE SULFATE
     Dosage: 2 DF (20-10 MG), 2 PILLS A DAY

REACTIONS (1)
  - Off label use [Not Recovered/Not Resolved]

NARRATIVE: CASE EVENT DATE: 20241101
